FAERS Safety Report 5318437-5 (Version None)
Quarter: 2007Q2

REPORT INFORMATION
  Report Type: 
  Country: None (occurrence: None)
  Receive Date: 20070507
  Receipt Date: 20070427
  Transmission Date: 20071010
  Serious: Yes (Other)
  Sender: FDA-Public Use
  Company Number: US-GENENTECH-239215

PATIENT
  Sex: Female
  Weight: 23.59 kg

DRUGS (1)
  1. SOMATROPIN [Suspect]
     Indication: GROWTH HORMONE DEFICIENCY
     Dosage: 2 MG, 7/WEEK
     Route: 058
     Dates: start: 20050819

REACTIONS (1)
  - SCOLIOSIS [None]
